FAERS Safety Report 5663572-5 (Version None)
Quarter: 2008Q1

REPORT INFORMATION
  Report Type: 
  Country: None (occurrence: None)
  Receive Date: 20080313
  Receipt Date: 20080310
  Transmission Date: 20080703
  Serious: Yes (Death)
  Sender: FDA-Public Use
  Company Number: US-BOEHRINGER INGELHEIM GMBH, GERMANY-2008-BP-03647BP

PATIENT
  Sex: Male

DRUGS (3)
  1. ZANTAC [Suspect]
     Indication: GASTROOESOPHAGEAL REFLUX DISEASE
     Route: 048
  2. BENADRYL [Concomitant]
  3. UNISOM [Concomitant]

REACTIONS (2)
  - DRUG TOXICITY [None]
  - MEDICATION ERROR [None]
